FAERS Safety Report 15353992 (Version 1)
Quarter: 2018Q4

REPORT INFORMATION
  Report Type: Report from Study
  Country: IT (occurrence: IT)
  Receive Date: 20180906
  Receipt Date: 20180906
  Transmission Date: 20190204
  Serious: Yes (Other)
  Sender: FDA-Public Use
  Company Number: IT-BAXTER-2018BAX022809

PATIENT
  Age: 75 Year
  Sex: Male
  Weight: 60 kg

DRUGS (4)
  1. ADRIBLASTINE [Suspect]
     Active Substance: DOXORUBICIN
     Indication: NON-HODGKIN^S LYMPHOMA
     Dosage: 50 MG/25 ML INJECTABLE SOLUTION FOR INTRAVENOUS USE
     Route: 042
     Dates: start: 20180710, end: 20180710
  2. VINCRISTINE TEVA ITALIA [Suspect]
     Active Substance: VINCRISTINE SULFATE
     Indication: NON-HODGKIN^S LYMPHOMA
     Dosage: INJECTABLE SOLUTION
     Route: 040
     Dates: start: 20180710, end: 20180710
  3. ENDOXAN BAXTER [Suspect]
     Active Substance: CYCLOPHOSPHAMIDE
     Indication: NON-HODGKIN^S LYMPHOMA
     Dosage: POWDER FOR INJECTABLE SOLUTION
     Route: 042
     Dates: start: 20180710, end: 20180710
  4. MABTHERA [Concomitant]
     Active Substance: RITUXIMAB
     Indication: NON-HODGKIN^S LYMPHOMA
     Dosage: SOLUTION FOR SUBCUTANEOUS INJECTION
     Route: 058
     Dates: start: 20180710, end: 20180710

REACTIONS (2)
  - Administration site extravasation [Recovering/Resolving]
  - Eschar [Recovering/Resolving]

NARRATIVE: CASE EVENT DATE: 20180710
